FAERS Safety Report 7753695-9 (Version None)
Quarter: 2011Q3

REPORT INFORMATION
  Report Type: 
  Country: None (occurrence: None)
  Receive Date: 20110915
  Receipt Date: 20110915
  Transmission Date: 20111222
  Serious: Yes (Life-Threatening)
  Sender: FDA-Public Use
  Company Number: None

PATIENT
  Age: 66 Year
  Sex: Female
  Weight: 66.678 kg

DRUGS (3)
  1. TRAMADOL HCL [Suspect]
     Indication: BACK PAIN
     Dates: start: 20110601, end: 20110729
  2. TRAMADOL HCL [Suspect]
     Indication: FUNGAL INFECTION
     Dates: start: 20110601, end: 20110729
  3. TRAMADOL HCL [Suspect]
     Indication: PAIN
     Dates: start: 20110601, end: 20110729

REACTIONS (13)
  - SUICIDAL IDEATION [None]
  - FATIGUE [None]
  - DYSURIA [None]
  - INSOMNIA [None]
  - ANXIETY [None]
  - AGITATION [None]
  - DIZZINESS [None]
  - FEELING ABNORMAL [None]
  - DEPRESSION [None]
  - PRURITUS [None]
  - HYPERHIDROSIS [None]
  - FLATULENCE [None]
  - VISUAL IMPAIRMENT [None]
